FAERS Safety Report 15532240 (Version 1)
Quarter: 2018Q4

REPORT INFORMATION
  Report Type: Spontaneous
  Country: US (occurrence: US)
  Receive Date: 20181019
  Receipt Date: 20181019
  Transmission Date: 20190205
  Serious: Yes (Disabling, Other)
  Sender: FDA-Public Use
  Company Number: US-NOVOPROD-626621

PATIENT
  Age: 53 Year
  Sex: Male

DRUGS (1)
  1. NOVOLIN R [Suspect]
     Active Substance: INSULIN HUMAN
     Indication: TYPE 2 DIABETES MELLITUS
     Dosage: UNK
     Route: 058
     Dates: start: 2012

REACTIONS (3)
  - Metastases to liver [Unknown]
  - Colon cancer [Not Recovered/Not Resolved]
  - Metastases to pancreas [Unknown]

NARRATIVE: CASE EVENT DATE: 2013
